FAERS Safety Report 13726041 (Version 1)
Quarter: 2017Q3

REPORT INFORMATION
  Report Type: Spontaneous
  Country: US (occurrence: US)
  Receive Date: 20170707
  Receipt Date: 20170707
  Transmission Date: 20171127
  Serious: Yes (Hospitalization)
  Sender: FDA-Public Use
  Company Number: None

PATIENT
  Age: 25 Year
  Sex: Female
  Weight: 65.83 kg

DRUGS (2)
  1. PARAGARD T 380A [Concomitant]
     Active Substance: COPPER
  2. MIRENA [Suspect]
     Active Substance: LEVONORGESTREL

REACTIONS (2)
  - Ovarian cyst [None]
  - Pain [None]

NARRATIVE: CASE EVENT DATE: 20161015
